FAERS Safety Report 9788909 (Version 2)
Quarter: 2015Q1

REPORT INFORMATION
  Report Type: Spontaneous
  Country: JP (occurrence: JP)
  Receive Date: 20131230
  Receipt Date: 20150109
  Transmission Date: 20150721
  Serious: Yes (Other)
  Sender: FDA-Public Use
  Company Number: JP-GLAXOSMITHKLINE-B0955693A

PATIENT
  Age: 29 Year
  Sex: Female

DRUGS (4)
  1. NAUZELIN [Concomitant]
     Active Substance: DOMPERIDONE
     Route: 065
  2. WYPAX [Concomitant]
     Active Substance: LORAZEPAM
     Route: 048
  3. BENZALIN [Concomitant]
     Active Substance: NITRAZEPAM
     Route: 048
  4. LAMOTRIGINE. [Suspect]
     Active Substance: LAMOTRIGINE
     Indication: BIPOLAR DISORDER
     Dosage: 50 MG, QD
     Route: 048
     Dates: start: 20130907, end: 20130921

REACTIONS (2)
  - Skin disorder [Recovered/Resolved]
  - Drug reaction with eosinophilia and systemic symptoms [Unknown]
